FAERS Safety Report 14431406 (Version 2)
Quarter: 2018Q1

REPORT INFORMATION
  Report Type: Spontaneous
  Country: US (occurrence: US)
  Receive Date: 20180124
  Receipt Date: 20180306
  Transmission Date: 20180509
  Serious: No
  Sender: FDA-Public Use
  Company Number: US-PFIZER INC-2018030160

PATIENT

DRUGS (1)
  1. INFANTS ADVIL CONCENTRATED DROPS [Suspect]
     Active Substance: IBUPROFEN
     Indication: PYREXIA
     Dosage: UNK

REACTIONS (1)
  - Drug ineffective [Unknown]
